FAERS Safety Report 15029786 (Version 2)
Quarter: 2018Q2

REPORT INFORMATION
  Report Type: Spontaneous
  Country: EC (occurrence: EC)
  Receive Date: 20180619
  Receipt Date: 20180625
  Transmission Date: 20180711
  Serious: Yes (Death, Other)
  Sender: FDA-Public Use
  Company Number: EC-JNJFOC-20180622758

PATIENT
  Sex: Female

DRUGS (1)
  1. XARELTO [Suspect]
     Active Substance: RIVAROXABAN
     Indication: PRODUCT USED FOR UNKNOWN INDICATION
     Route: 048

REACTIONS (10)
  - Glomerular filtration rate decreased [Unknown]
  - Cerebral artery embolism [Unknown]
  - Cerebrovascular accident [Fatal]
  - Embolism [Unknown]
  - Haemorrhage intracranial [Unknown]
  - Renal failure [Unknown]
  - Acute kidney injury [Unknown]
  - Cerebrovascular accident [Unknown]
  - Haemorrhage [Unknown]
  - Blood creatinine increased [Unknown]
